FAERS Safety Report 12503267 (Version 1)
Quarter: 2016Q2

REPORT INFORMATION
  Report Type: Spontaneous
  Country: US (occurrence: None)
  Receive Date: 20160627
  Receipt Date: 20160627
  Transmission Date: 20160815
  Serious: Yes (Other)
  Sender: FDA-Public Use
  Company Number: None

PATIENT
  Age: 41 Year
  Sex: Female
  Weight: 65.9 kg

DRUGS (2)
  1. SCOPOLAMINE PATCH [Suspect]
     Active Substance: SCOPOLAMINE
     Indication: PROPHYLAXIS OF NAUSEA AND VOMITING
     Dosage: ONCE A DAY APPLIED TO A SURFACE, USUALLY THE SKIN
     Route: 061
  2. ORTHNOVUM 7/7/7 [Concomitant]

REACTIONS (2)
  - Dysuria [None]
  - Dry mouth [None]

NARRATIVE: CASE EVENT DATE: 20160624
